FAERS Safety Report 21253832 (Version 1)
Quarter: 2022Q3

REPORT INFORMATION
  Report Type: Spontaneous
  Country: US (occurrence: None)
  Receive Date: 20220824
  Receipt Date: 20220824
  Transmission Date: 20221026
  Serious: Yes (Disabling)
  Sender: FDA-Public Use
  Company Number: None

PATIENT
  Age: 77 Year
  Sex: Female
  Weight: 84.6 kg

DRUGS (12)
  1. BENZOCAINE [Suspect]
     Active Substance: BENZOCAINE
     Indication: Abscess jaw
     Dosage: OTHER QUANTITY : 1 APPLICATION;?FREQUENCY : ONCE;?
     Route: 061
     Dates: start: 20220819, end: 20220819
  2. FUROSEMIDE [Concomitant]
     Active Substance: FUROSEMIDE
  3. LEVOTHYROXINE [Concomitant]
     Active Substance: LEVOTHYROXINE
  4. Methazolamine [Concomitant]
  5. PREDNISOLONE [Concomitant]
     Active Substance: PREDNISOLONE
  6. UNSPECIFIED INGREDIENT [Concomitant]
     Active Substance: UNSPECIFIED INGREDIENT
  7. Vitamin B12 [Concomitant]
  8. VITAMIN D3 [Concomitant]
     Active Substance: CHOLECALCIFEROL
  9. TRIAMCINOLONE [Concomitant]
     Active Substance: TRIAMCINOLONE
  10. VITAMIN E [Concomitant]
     Active Substance: .ALPHA.-TOCOPHEROL
  11. ZINC [Concomitant]
     Active Substance: ZINC
  12. CALCIUM [Concomitant]
     Active Substance: CALCIUM

REACTIONS (2)
  - Incorrect route of product administration [None]
  - Skin discolouration [None]

NARRATIVE: CASE EVENT DATE: 20220819
